FAERS Safety Report 4684540-6 (Version None)
Quarter: 2005Q2

REPORT INFORMATION
  Report Type: 
  Country: None (occurrence: None)
  Receive Date: 20050531
  Receipt Date: 20050426
  Transmission Date: 20051028
  Serious: Yes (Hospitalization)
  Sender: FDA-Public Use
  Company Number: US_0405103085

PATIENT
  Age: 79 Year
  Sex: Female
  Weight: 59 kg

DRUGS (20)
  1. ZYPREXA [Suspect]
     Indication: BIPOLAR DISORDER
     Dosage: 25 MG DAY
     Dates: start: 19970918, end: 20021124
  2. LITHIUM [Concomitant]
  3. PAXIL [Concomitant]
  4. NEURONTIN (GABAPENTIN PFIZER) [Concomitant]
  5. KLONOPIN [Concomitant]
  6. ATIVAN [Concomitant]
  7. PRILOSEC (OMEPRAZOLE RATIOPHARM) [Concomitant]
  8. AMBIEN [Concomitant]
  9. MULTI-VITAMIN [Concomitant]
  10. MILK OF MAGNESIA [Concomitant]
  11. TYLENOL (CAPLET) [Concomitant]
  12. TETANUS VACCINE [Concomitant]
  13. ACTOS [Concomitant]
  14. RISPERIDONE [Concomitant]
  15. DEPAKOTE [Concomitant]
  16. HYDROCHLOROTHIAZIDE [Concomitant]
  17. PROTONIX [Concomitant]
  18. LANSOPRAZOLE [Concomitant]
  19. DIPHENHYDRAMINE HCL [Concomitant]
  20. COGENTIN [Concomitant]

REACTIONS (25)
  - ANXIETY [None]
  - BIPOLAR DISORDER [None]
  - BLOOD CHOLESTEROL INCREASED [None]
  - BLOOD GLUCOSE INCREASED [None]
  - BLOOD TRIGLYCERIDES DECREASED [None]
  - CONFUSIONAL STATE [None]
  - CONTUSION [None]
  - DECREASED APPETITE [None]
  - DIABETES MELLITUS [None]
  - DYSARTHRIA [None]
  - FALL [None]
  - HEPATIC ENZYME INCREASED [None]
  - HEPATIC FUNCTION ABNORMAL [None]
  - HYPERGLYCAEMIA [None]
  - HYPERTENSION [None]
  - INSOMNIA [None]
  - JOINT SPRAIN [None]
  - LACERATION [None]
  - MYALGIA [None]
  - POLYURIA [None]
  - PRESCRIBED OVERDOSE [None]
  - SCHIZOPHRENIA, PARANOID TYPE [None]
  - THERAPEUTIC AGENT TOXICITY [None]
  - THINKING ABNORMAL [None]
  - VISION BLURRED [None]
